FAERS Safety Report 4884580-8 (Version None)
Quarter: 2006Q1

REPORT INFORMATION
  Report Type: 
  Country: None (occurrence: None)
  Receive Date: 20060119
  Receipt Date: 20060109
  Transmission Date: 20060701
  Serious: Yes (Death, Life-Threatening)
  Sender: FDA-Public Use
  Company Number: PE-BRISTOL-MYERS SQUIBB COMPANY-13239595

PATIENT
  Age: 71 Year
  Sex: Female

DRUGS (11)
  1. CISPLATIN [Suspect]
     Indication: GASTRIC CANCER
     Route: 041
     Dates: start: 20051223, end: 20051223
  2. FLUOROURACIL [Suspect]
     Indication: GASTRIC CANCER
     Route: 041
     Dates: start: 20051223, end: 20051227
  3. RANITIDINE [Concomitant]
     Indication: PROPHYLAXIS AGAINST GASTROINTESTINAL ULCER
     Route: 041
     Dates: start: 20051223, end: 20051227
  4. RANITIDINE [Concomitant]
     Route: 048
     Dates: start: 20051228, end: 20060102
  5. METOCLOPRAMIDE [Concomitant]
     Indication: PROPHYLAXIS OF NAUSEA AND VOMITING
     Route: 041
     Dates: start: 20051223, end: 20051227
  6. ONDANSETRON [Concomitant]
     Indication: PROPHYLAXIS OF NAUSEA AND VOMITING
     Route: 041
     Dates: start: 20051225, end: 20051227
  7. IBUPROFEN [Concomitant]
     Indication: ABDOMINAL PAIN
     Route: 048
     Dates: start: 20051228, end: 20060102
  8. FUROSEMIDE [Concomitant]
     Indication: FLUID RETENTION
     Route: 041
     Dates: start: 20051225, end: 20051228
  9. GLIBENCLAMIDE [Concomitant]
     Indication: DIABETES MELLITUS
     Route: 048
     Dates: start: 20000101, end: 20060102
  10. CAPTOPRIL [Concomitant]
     Indication: HYPERTENSION
     Route: 048
     Dates: start: 20000101, end: 20060102
  11. DEXAMETHASONE TAB [Concomitant]
     Indication: PROPHYLAXIS OF NAUSEA AND VOMITING
     Route: 042
     Dates: start: 20051223, end: 20051227

REACTIONS (5)
  - DEHYDRATION [None]
  - NEUTROPENIA [None]
  - RENAL FAILURE ACUTE [None]
  - SEPTIC SHOCK [None]
  - THROMBOCYTOPENIA [None]
